FAERS Safety Report 6482961-2 (Version None)
Quarter: 2009Q4

REPORT INFORMATION
  Report Type: 
  Country: None (occurrence: None)
  Receive Date: 20091209
  Receipt Date: 20091201
  Transmission Date: 20100525
  Serious: Yes (Other)
  Sender: FDA-Public Use
  Company Number: CN-WYE-G05031009

PATIENT
  Sex: Male
  Weight: 40 kg

DRUGS (11)
  1. MOROCTOCOG ALFA AF OSA [Suspect]
     Indication: FACTOR VIII DEFICIENCY
     Dosage: 2500.0IU GIVEN FOR INITIAL RECOVERY
     Route: 040
     Dates: start: 20090429, end: 20090429
  2. MOROCTOCOG ALFA AF OSA [Suspect]
     Dosage: 2000.0IU GIVEN FOR FINAL RECOVERY
     Route: 040
     Dates: start: 20091102, end: 20091102
  3. MOROCTOCOG ALFA AF OSA [Suspect]
     Dosage: 500.0IU PER TIME ON DEMAND
     Route: 040
     Dates: start: 20090515, end: 20090515
  4. MOROCTOCOG ALFA AF OSA [Suspect]
     Dosage: 1000.0IU PER TIME ON DEMAND
     Route: 040
     Dates: start: 20090526, end: 20090526
  5. MOROCTOCOG ALFA AF OSA [Suspect]
     Dosage: 1000.0IU PER TIME ON DEMAND
     Route: 040
     Dates: start: 20090708, end: 20090708
  6. MOROCTOCOG ALFA AF OSA [Suspect]
     Dosage: 1000.0IU PER TIME ON DEMAND
     Route: 040
     Dates: start: 20090908, end: 20090908
  7. MOROCTOCOG ALFA AF OSA [Suspect]
     Dosage: 500.0IU PER TIME ON DEMAND
     Route: 040
     Dates: start: 20090918, end: 20090918
  8. MOROCTOCOG ALFA AF OSA [Suspect]
     Dosage: 1000.0IU PER TIME ON DEMAND
     Route: 040
     Dates: start: 20090925, end: 20090925
  9. MOROCTOCOG ALFA AF OSA [Suspect]
     Dosage: 1000.0IU PER TIME ON DEMAND
     Route: 040
     Dates: start: 20090929, end: 20090929
  10. MOROCTOCOG ALFA AF OSA [Suspect]
     Dosage: 1000.0IU PER TIME ON DEMAND
     Route: 040
     Dates: start: 20091013, end: 20091013
  11. MOROCTOCOG ALFA AF OSA [Suspect]
     Dosage: 1000.0IU PER TIME ON DEMAND
     Route: 040
     Dates: start: 20091016, end: 20091016

REACTIONS (1)
  - FACTOR VIII INHIBITION [None]
